FAERS Safety Report 8171753-4 (Version None)
Quarter: 2012Q1

REPORT INFORMATION
  Report Type: 
  Country: None (occurrence: None)
  Receive Date: 20120228
  Receipt Date: 20101021
  Transmission Date: 20120608
  Serious: Yes (Hospitalization)
  Sender: FDA-Public Use
  Company Number: US-GLAXOSMITHKLINE-A0889256A

PATIENT
  Age: 73 Year
  Sex: Male
  Weight: 115.5 kg

DRUGS (12)
  1. AVALIDE [Concomitant]
  2. HYDROCHLOROTHIAZIDE [Concomitant]
  3. ZOCOR [Concomitant]
  4. AVANDAMET [Suspect]
     Indication: DIABETES MELLITUS
     Dosage: 1TAB TWICE PER DAY
     Route: 048
     Dates: start: 20030101, end: 20060101
  5. PROVIGIL [Concomitant]
  6. NIASPAN [Concomitant]
  7. TOPROL-XL [Concomitant]
  8. AVANDIA [Suspect]
     Indication: DIABETES MELLITUS
     Dosage: 2MG TWICE PER DAY
     Route: 048
     Dates: start: 20050601, end: 20100401
  9. METFORMIN HCL [Concomitant]
  10. AMARYL [Concomitant]
  11. TRICOR [Concomitant]
  12. UROXATRAL [Concomitant]

REACTIONS (3)
  - CARDIAC FAILURE CONGESTIVE [None]
  - ATRIAL FIBRILLATION [None]
  - SICK SINUS SYNDROME [None]
